FAERS Safety Report 13914658 (Version 1)
Quarter: 2017Q3

REPORT INFORMATION
  Report Type: Other
  Country: TH (occurrence: TH)
  Receive Date: 20170828
  Receipt Date: 20170828
  Transmission Date: 20171127
  Serious: Yes (Hospitalization)
  Sender: FDA-Public Use
  Company Number: TH-TERSERA THERAPEUTICS, LLC-2025214

PATIENT
  Age: 34 Year
  Sex: Female

DRUGS (1)
  1. ERGOMAR [Suspect]
     Active Substance: ERGOTAMINE TARTRATE
     Indication: MIGRAINE
     Route: 048

REACTIONS (8)
  - Blood creatine phosphokinase increased [Unknown]
  - Cyanosis [Unknown]
  - Erythema [Unknown]
  - Skin lesion [Unknown]
  - Ergot poisoning [Unknown]
  - Hypotension [Unknown]
  - Pyrexia [Unknown]
  - Drug interaction [Unknown]
